FAERS Safety Report 21002162 (Version 1)
Quarter: 2022Q2

REPORT INFORMATION
  Report Type: Spontaneous
  Country: FR (occurrence: FR)
  Receive Date: 20220624
  Receipt Date: 20220624
  Transmission Date: 20220720
  Serious: Yes (Other)
  Sender: FDA-Public Use
  Company Number: None

PATIENT
  Age: 82 Year
  Sex: Male
  Weight: 71.7 kg

DRUGS (2)
  1. PAROXETINE [Suspect]
     Active Substance: PAROXETINE
     Indication: Depression
     Dosage: UNIT DOSE: 20 MG, FREQUENCY TIME- 1 DAY, DURATION-8 YRS
     Route: 048
     Dates: start: 2014, end: 20220416
  2. MIRTAZAPINE [Concomitant]
     Active Substance: MIRTAZAPINE
     Indication: Depression
     Dosage: 15 MG, FREQUENCY TIME 1 DAY
     Route: 048
     Dates: start: 20220407

REACTIONS (4)
  - Delirium [Recovered/Resolved]
  - Hallucination [Recovered/Resolved]
  - Disorientation [Recovering/Resolving]
  - Withdrawal syndrome [Recovering/Resolving]

NARRATIVE: CASE EVENT DATE: 20220411
